FAERS Safety Report 18705878 (Version 1)
Quarter: 2021Q1

REPORT INFORMATION
  Report Type: Report from Study
  Country: US (occurrence: US)
  Receive Date: 20210106
  Receipt Date: 20210106
  Transmission Date: 20210419
  Serious: No
  Sender: FDA-Public Use
  Company Number: NVSC2020US346612

PATIENT
  Age: 45 Year
  Sex: Female

DRUGS (1)
  1. GLATOPA [Suspect]
     Active Substance: GLATIRAMER ACETATE
     Indication: MULTIPLE SCLEROSIS
     Dosage: 40 MG, UNKNOWN
     Route: 058
     Dates: start: 20201207

REACTIONS (4)
  - Injection site pain [Unknown]
  - Injection site bruising [Unknown]
  - Injection site mass [Unknown]
  - Injection site erythema [Unknown]

NARRATIVE: CASE EVENT DATE: 20201229
